FAERS Safety Report 15208365 (Version 1)
Quarter: 2018Q3

REPORT INFORMATION
  Report Type: Spontaneous
  Country: BR (occurrence: BR)
  Receive Date: 20180727
  Receipt Date: 20180727
  Transmission Date: 20181010
  Serious: Yes (Death, Hospitalization, Other)
  Sender: FDA-Public Use
  Company Number: BR-ACTELION-A-CH2018-176308

PATIENT
  Age: 58 Year
  Sex: Male

DRUGS (2)
  1. SILDENAFIL. [Concomitant]
     Active Substance: SILDENAFIL
     Indication: PULMONARY ARTERIAL HYPERTENSION
     Dosage: 20 MG, TID
     Route: 048
     Dates: start: 2007, end: 20180719
  2. OPSUMIT [Suspect]
     Active Substance: MACITENTAN
     Indication: PULMONARY ARTERIAL HYPERTENSION
     Dosage: 10 MG, QD
     Route: 048
     Dates: start: 2015, end: 20180719

REACTIONS (7)
  - Oesophageal varices haemorrhage [Fatal]
  - Renal failure [Unknown]
  - Haematemesis [Unknown]
  - Multiple organ dysfunction syndrome [Unknown]
  - Transfusion [Unknown]
  - Cardiogenic shock [Fatal]
  - Dialysis [Unknown]

NARRATIVE: CASE EVENT DATE: 20180717
